FAERS Safety Report 8510977-0 (Version None)
Quarter: 2012Q3

REPORT INFORMATION
  Report Type: 
  Country: None (occurrence: None)
  Receive Date: 20120710
  Receipt Date: 20120710
  Transmission Date: 20120928
  Serious: Yes (Other)
  Sender: FDA-Public Use
  Company Number: None

PATIENT
  Sex: Female

DRUGS (1)
  1. PICATO [Suspect]
     Indication: BASAL CELL CARCINOMA
     Dosage: ONE APPLICATION

REACTIONS (6)
  - APPLICATION SITE VESICLES [None]
  - EYE SWELLING [None]
  - APPLICATION SITE SWELLING [None]
  - PYREXIA [None]
  - APPLICATION SITE BURN [None]
  - INSOMNIA [None]
